FAERS Safety Report 9805602 (Version 1)
Quarter: 2014Q1

REPORT INFORMATION
  Report Type: Spontaneous
  Country: US (occurrence: None)
  Receive Date: 20140107
  Receipt Date: 20140107
  Transmission Date: 20141002
  Serious: Yes (Death)
  Sender: FDA-Public Use
  Company Number: KAD201312-001803

PATIENT
  Sex: 0

DRUGS (1)
  1. TOPOTECAN (TOPOTECAN) [Suspect]
     Indication: RECURRENT CANCER
     Route: 048

REACTIONS (9)
  - Anaemia [None]
  - Neutropenia [None]
  - Diarrhoea [None]
  - Thrombosis [None]
  - Vomiting [None]
  - Obstruction [None]
  - Neutropenic sepsis [None]
  - Gastrointestinal toxicity [None]
  - Haematotoxicity [None]
